FAERS Safety Report 6497583-7 (Version None)
Quarter: 2009Q4

REPORT INFORMATION
  Report Type: 
  Country: None (occurrence: None)
  Receive Date: 20091215
  Receipt Date: 20091210
  Transmission Date: 20100525
  Serious: Yes (Life-Threatening)
  Sender: FDA-Public Use
  Company Number: JP-SANOFI-AVENTIS-200911264JP

PATIENT
  Age: 51 Year
  Sex: Female

DRUGS (7)
  1. LEFLUNOMIDE [Suspect]
     Indication: RHEUMATOID ARTHRITIS
     Route: 048
     Dates: start: 20080602, end: 20080604
  2. LEFLUNOMIDE [Suspect]
     Route: 048
     Dates: start: 20080605, end: 20080613
  3. PREDNISOLONE [Concomitant]
     Indication: RHEUMATOID ARTHRITIS
     Dosage: 2 TABLETSX2/DAY
     Route: 048
     Dates: start: 20080402, end: 20080614
  4. LOXOPROFEN SODIUM [Concomitant]
     Indication: RHEUMATOID ARTHRITIS
     Dosage: 1 TABLETX3/DAY
     Route: 048
     Dates: start: 20080206, end: 20080614
  5. HICEE [Concomitant]
     Indication: VITAMIN C DEFICIENCY
     Dosage: 1PACKAGEX3/DAY
     Route: 048
     Dates: start: 20080206, end: 20080614
  6. TOCOPHERYL NICOTINATE [Concomitant]
     Indication: PERIPHERAL CIRCULATORY FAILURE
     Dosage: 1CAPSULESX3/DAY
     Route: 048
     Dates: start: 20080206, end: 20080614
  7. NEUROVITAN [Concomitant]
     Indication: HYPOVITAMINOSIS
     Dosage: 1 TABLET X3/DAY
     Route: 048
     Dates: start: 20080206, end: 20080614

REACTIONS (1)
  - HISTIOCYTOSIS HAEMATOPHAGIC [None]
